FAERS Safety Report 5383072-X (Version None)
Quarter: 2007Q3

REPORT INFORMATION
  Report Type: 
  Country: None (occurrence: None)
  Receive Date: 20070710
  Receipt Date: 20070703
  Transmission Date: 20080115
  Serious: Yes (Other)
  Sender: FDA-Public Use
  Company Number: PHBS2007GR11144

PATIENT
  Age: 20 Year
  Sex: Female

DRUGS (1)
  1. TRILEPTAL [Suspect]
     Indication: CONVULSION
     Dosage: 600 MG, BID
     Route: 048

REACTIONS (6)
  - ANXIETY [None]
  - CONFUSIONAL STATE [None]
  - DISSOCIATION [None]
  - MENTAL DISORDER [None]
  - SPEECH DISORDER [None]
  - STRESS [None]
